FAERS Safety Report 8896295 (Version 1)
Quarter: 2012Q4

REPORT INFORMATION
  Report Type: Spontaneous
  Country: FR (occurrence: None)
  Receive Date: 20121031
  Receipt Date: 20121031
  Transmission Date: 20130627
  Serious: Yes (Hospitalization)
  Sender: FDA-Public Use
  Company Number: SP06161

PATIENT
  Age: 60 Year
  Sex: Female

DRUGS (2)
  1. OSMOPREP [Suspect]
     Indication: BOWEL PREPARATION
     Dosage: (32 Dosage forms), Oral
     Route: 048
     Dates: start: 201209
  2. DIPRIVAN [Concomitant]

REACTIONS (2)
  - Tachycardia [None]
  - Atrial fibrillation [None]
